FAERS Safety Report 12412957 (Version 1)
Quarter: 2016Q2

REPORT INFORMATION
  Report Type: Spontaneous
  Country: US (occurrence: US)
  Receive Date: 20160527
  Receipt Date: 20160527
  Transmission Date: 20160815
  Serious: Yes (Hospitalization, Other)
  Sender: FDA-Public Use
  Company Number: US-AMGEN-USASP2016064271

PATIENT
  Age: 57 Year
  Sex: Female

DRUGS (1)
  1. ENBREL [Suspect]
     Active Substance: ETANERCEPT
     Indication: PSORIASIS
     Dosage: 50 MG QWK
     Route: 065
     Dates: start: 2010

REACTIONS (8)
  - Skin swelling [Unknown]
  - Multiple fractures [Unknown]
  - Skin exfoliation [Unknown]
  - Intervertebral disc operation [Unknown]
  - Rash erythematous [Unknown]
  - Spondylitis [Unknown]
  - Surgery [Unknown]
  - Rash pruritic [Not Recovered/Not Resolved]
